FAERS Safety Report 10916219 (Version 1)
Quarter: 2015Q1

REPORT INFORMATION
  Report Type: Spontaneous
  Country: US (occurrence: None)
  Receive Date: 20150312
  Receipt Date: 20150312
  Transmission Date: 20150721
  Serious: Yes (Other)
  Sender: FDA-Public Use
  Company Number: None

PATIENT
  Age: 71 Year
  Sex: Female
  Weight: 72.12 kg

DRUGS (9)
  1. ATORVASTATIN [Suspect]
     Active Substance: ATORVASTATIN
     Indication: BLOOD CHOLESTEROL INCREASED
     Dosage: 20 MG, 90 PILLS/ 1 PILL DAILY, ONCE A DAY, BY MOUTH
     Route: 048
     Dates: start: 20150103, end: 20150109
  2. BAYER ASPIRIN [Concomitant]
     Active Substance: ASPIRIN
  3. GLUCOSAMINE HCI [Concomitant]
  4. MSM [Concomitant]
     Active Substance: DIMETHYL SULFONE
  5. SOLFTGEL GARLIC [Concomitant]
  6. NIACIN. [Concomitant]
     Active Substance: NIACIN
  7. OMEGA [Concomitant]
     Active Substance: CONVALLARIA MAJALIS\CRATAEGUS LAEVIGATA LEAF\PROXYPHYLLINE
  8. VITAMIN D3 [Concomitant]
     Active Substance: CHOLECALCIFEROL
  9. OMEGA-3 KRILL OIL [Concomitant]

REACTIONS (2)
  - Ocular hyperaemia [None]
  - Ocular discomfort [None]

NARRATIVE: CASE EVENT DATE: 20150110
